FAERS Safety Report 6533476-4 (Version None)
Quarter: 2010Q1

REPORT INFORMATION
  Report Type: 
  Country: None (occurrence: None)
  Receive Date: 20100111
  Receipt Date: 20100102
  Transmission Date: 20100710
  Serious: Yes (Other)
  Sender: FDA-Public Use
  Company Number: IT-CELGENEUS-083-21880-10010117

PATIENT
  Age: 22 Year
  Sex: Male

DRUGS (2)
  1. REVLIMID [Suspect]
     Route: 048
  2. REVLIMID [Suspect]
     Route: 048

REACTIONS (5)
  - ANAEMIA [None]
  - DIARRHOEA [None]
  - FATIGUE [None]
  - THROMBOCYTOPENIA [None]
  - TUMOUR FLARE [None]
